FAERS Safety Report 25091606 (Version 1)
Quarter: 2025Q1

REPORT INFORMATION
  Report Type: Spontaneous
  Country: US (occurrence: US)
  Receive Date: 20250318
  Receipt Date: 20250318
  Transmission Date: 20250409
  Serious: No
  Sender: SANOFI AVENTIS
  Company Number: US-SA-2025SA077125

PATIENT
  Age: 40 Year
  Sex: Male

DRUGS (4)
  1. DUPIXENT [Suspect]
     Active Substance: DUPILUMAB
     Indication: Dermatitis atopic
     Dosage: 300 MG, QOW
     Route: 058
  2. COSMETICS [Concomitant]
     Active Substance: COSMETICS
  3. CERAVE DEVELOPED WITH DERMATOLOGISTS ECZEMA RELIEF CREAMY [Concomitant]
     Active Substance: OATMEAL
  4. ZYRTEC [Concomitant]
     Active Substance: CETIRIZINE HYDROCHLORIDE

REACTIONS (4)
  - Dry skin [Unknown]
  - Skin irritation [Unknown]
  - Injection site pain [Unknown]
  - Inappropriate schedule of product administration [Unknown]
